FAERS Safety Report 19212636 (Version 1)
Quarter: 2021Q2

REPORT INFORMATION
  Report Type: Spontaneous
  Country: FR (occurrence: FR)
  Receive Date: 20210504
  Receipt Date: 20210504
  Transmission Date: 20210717
  Serious: Yes (Other)
  Sender: FDA-Public Use
  Company Number: FR-TEVA-2021-FR-1906518

PATIENT
  Age: 47 Year
  Sex: Female

DRUGS (1)
  1. COPAXONE 40 MG PRE?FILLED SYRINGE [Suspect]
     Active Substance: GLATIRAMER ACETATE
     Dates: start: 20201019

REACTIONS (3)
  - Synovial cyst [Unknown]
  - Chest discomfort [Unknown]
  - Dyspnoea [Unknown]

NARRATIVE: CASE EVENT DATE: 202104
